FAERS Safety Report 8780666 (Version 2)
Quarter: 2014Q1

REPORT INFORMATION
  Report Type: Spontaneous
  Country: FR (occurrence: FR)
  Receive Date: 20120913
  Receipt Date: 20140207
  Transmission Date: 20141002
  Serious: Yes (Death, Other)
  Sender: FDA-Public Use
  Company Number: FR-ASTRAZENECA-2012SE71097

PATIENT
  Age: 28300 Day
  Sex: Male

DRUGS (9)
  1. XEROQUEL [Suspect]
     Route: 048
     Dates: start: 20120814
  2. LASILIX [Concomitant]
  3. RAMIPRIL [Concomitant]
  4. EUPRESSYL [Concomitant]
  5. AMLOR [Concomitant]
  6. VALIUM [Concomitant]
  7. VITAMINE B1B6PP [Concomitant]
  8. MOVICOL [Concomitant]
  9. PREVISCAN [Concomitant]

REACTIONS (3)
  - Death [Fatal]
  - Fall [Fatal]
  - Haemorrhage [Unknown]
